FAERS Safety Report 11866520 (Version 1)
Quarter: 2015Q4

REPORT INFORMATION
  Report Type: Spontaneous
  Country: US (occurrence: US)
  Receive Date: 20151224
  Receipt Date: 20151224
  Transmission Date: 20160305
  Serious: No
  Sender: FDA-Public Use
  Company Number: US-ASTRAZENECA-2015SF29830

PATIENT
  Sex: Male

DRUGS (1)
  1. NEXIUM [Suspect]
     Active Substance: ESOMEPRAZOLE MAGNESIUM
     Dosage: 2 CAPSULE A DAY FOR 14 DAYS
     Route: 048

REACTIONS (3)
  - Drug ineffective [Unknown]
  - Dyspepsia [Unknown]
  - Product quality issue [Unknown]
